FAERS Safety Report 9402788 (Version 1)
Quarter: 2013Q3

REPORT INFORMATION
  Report Type: Spontaneous
  Country: US (occurrence: US)
  Receive Date: 20130716
  Receipt Date: 20130716
  Transmission Date: 20140515
  Serious: Yes (Other)
  Sender: FDA-Public Use
  Company Number: US-BAYER-2013-083641

PATIENT
  Sex: Male

DRUGS (8)
  1. BETASERON [Suspect]
     Dosage: 0.3 MG, UNK
     Dates: start: 1994, end: 1997
  2. CAVERJECT [Concomitant]
     Dosage: 20 ?G, UNK
  3. LIPITOR [Concomitant]
     Dosage: 10 MG, UNK
  4. BUPROPION [Concomitant]
     Dosage: 100 MG, UNK
  5. GABAPENTIN [Concomitant]
     Dosage: 100 MG, UNK
  6. BACLOFEN [Concomitant]
     Dosage: 10 MG, UNK
  7. VITAMIN D [Concomitant]
     Dosage: 2000 U, UNK
  8. COPAXONE [Concomitant]
     Dosage: 20 MG/ML, UNK

REACTIONS (1)
  - Unevaluable event [Unknown]
